FAERS Safety Report 13688767 (Version 1)
Quarter: 2017Q2

REPORT INFORMATION
  Report Type: Spontaneous
  Country: US (occurrence: US)
  Receive Date: 20170626
  Receipt Date: 20170626
  Transmission Date: 20170830
  Serious: No
  Sender: FDA-Public Use
  Company Number: US-BIOGEN-2017BI00420016

PATIENT
  Sex: Female

DRUGS (1)
  1. TYSABRI [Suspect]
     Active Substance: NATALIZUMAB
     Indication: MULTIPLE SCLEROSIS
     Route: 065
     Dates: start: 20170120

REACTIONS (7)
  - Tremor [Unknown]
  - Musculoskeletal stiffness [Unknown]
  - Migraine [Unknown]
  - Multiple sclerosis [Unknown]
  - Muscle spasms [Unknown]
  - Hypoaesthesia [Unknown]
  - Abasia [Unknown]
